FAERS Safety Report 4351563-6 (Version None)
Quarter: 2004Q2

REPORT INFORMATION
  Report Type: 
  Country: None (occurrence: None)
  Receive Date: 20040429
  Receipt Date: 20040107
  Transmission Date: 20050107
  Serious: No
  Sender: FDA-Public Use
  Company Number: 2004-111381-NL

PATIENT
  Age: 43 Year
  Sex: Female
  Weight: 59 kg

DRUGS (6)
  1. NUVARING [Suspect]
     Indication: MENORRHAGIA
     Dosage: DF DAILY VAGINAL
     Route: 067
     Dates: start: 20031220, end: 20031231
  2. LAMICTAL [Concomitant]
  3. ALEVE [Concomitant]
  4. TRILEPTAL [Concomitant]
  5. VISTARIL [Concomitant]
  6. ANTI-CONVULSANT [Concomitant]

REACTIONS (15)
  - ABDOMINAL PAIN [None]
  - ANAEMIA [None]
  - ASTHENIA [None]
  - DYSPNOEA [None]
  - FATIGUE [None]
  - GENITAL PRURITUS FEMALE [None]
  - HYPOAESTHESIA [None]
  - METRORRHAGIA [None]
  - NAUSEA [None]
  - PAIN IN EXTREMITY [None]
  - PALPITATIONS [None]
  - VAGINAL DISCHARGE [None]
  - VISION BLURRED [None]
  - VOMITING [None]
  - VULVOVAGINAL DISCOMFORT [None]
